FAERS Safety Report 8879990 (Version 1)
Quarter: 2012Q4

REPORT INFORMATION
  Report Type: 
  Country: FI (occurrence: FI)
  Receive Date: 20121101
  Receipt Date: 20121101
  Transmission Date: 20130627
  Serious: Yes (Hospitalization)
  Sender: FDA-Public Use
  Company Number: FI-AMGEN-FINSP2012060121

PATIENT
  Age: 14 Year
  Sex: Male
  Weight: 51 kg

DRUGS (3)
  1. ENBREL [Suspect]
     Indication: RHEUMATOID ARTHRITIS
     Dosage: UNK, 2 times/wk
     Dates: start: 200808, end: 201102
  2. ENBREL [Suspect]
     Dosage: UNK, 2 times/wk
     Dates: start: 201106
  3. ENBREL [Suspect]
     Dosage: 50 mg, UNK
     Dates: start: 20120830

REACTIONS (7)
  - Device malfunction [Unknown]
  - Injection site injury [Unknown]
  - Herpes virus infection [Not Recovered/Not Resolved]
  - Injection site paraesthesia [Unknown]
  - Injection site hypersensitivity [Unknown]
  - Injection site swelling [Unknown]
  - Injection site erythema [Unknown]
